FAERS Safety Report 10625725 (Version 1)
Quarter: 2014Q4

REPORT INFORMATION
  Report Type: Spontaneous
  Country: US (occurrence: US)
  Receive Date: 20141204
  Receipt Date: 20141204
  Transmission Date: 20150529
  Serious: No
  Sender: FDA-Public Use
  Company Number: US-ASTRAZENECA-2014SE80501

PATIENT
  Age: 25501 Day
  Sex: Female
  Weight: 69.9 kg

DRUGS (3)
  1. SYMBICORT [Suspect]
     Active Substance: BUDESONIDE\FORMOTEROL FUMARATE DIHYDRATE
     Indication: EMPHYSEMA
     Dosage: 80/4.5 MCG ONE DF TWO TIMES A DAY
     Route: 055
     Dates: start: 20140930, end: 20141014
  2. CARTIA XT [Concomitant]
     Active Substance: DILTIAZEM HYDROCHLORIDE
     Indication: SUPRAVENTRICULAR TACHYCARDIA
     Route: 048
     Dates: start: 2013
  3. ZETIA [Concomitant]
     Active Substance: EZETIMIBE
     Indication: DRUG INTOLERANCE
     Route: 048
     Dates: start: 201404

REACTIONS (5)
  - Dermatitis contact [Recovering/Resolving]
  - Oropharyngeal pain [Recovering/Resolving]
  - Product use issue [Recovered/Resolved]
  - Tonsillitis [Recovering/Resolving]
  - Throat irritation [Recovering/Resolving]

NARRATIVE: CASE EVENT DATE: 20140930
